FAERS Safety Report 8992057 (Version 1)
Quarter: 2012Q4

REPORT INFORMATION
  Report Type: 
  Country: CA (occurrence: CA)
  Receive Date: 20121231
  Receipt Date: 20121231
  Transmission Date: 20130627
  Serious: Yes (Death, Other)
  Sender: FDA-Public Use
  Company Number: PHHY2012CA120167

PATIENT

DRUGS (6)
  1. IMATINIB [Suspect]
     Indication: ACUTE MYELOID LEUKAEMIA
     Dosage: 100 mg, daily
     Route: 048
  2. SORAFENIB [Suspect]
     Dosage: 400 mg, BID
  3. PREDNISONE [Concomitant]
     Dosage: UNK UKN, UNK
  4. CYCLOPHOSPHAMIDE [Concomitant]
     Dosage: UNK UKN, UNK
  5. METHOTREXATE [Concomitant]
     Indication: PROPHYLAXIS AGAINST GRAFT VERSUS HOST DISEASE
     Dosage: UNK UKN, UNK
  6. CYCLOSPORINE [Concomitant]
     Indication: PROPHYLAXIS AGAINST GRAFT VERSUS HOST DISEASE
     Dosage: UNK UKN, UNK

REACTIONS (8)
  - Ventricular hypertrophy [Unknown]
  - Organising pneumonia [Unknown]
  - Respiratory failure [Fatal]
  - Acute myeloid leukaemia recurrent [Unknown]
  - Bone marrow failure [Unknown]
  - Thrombocytopenia [Unknown]
  - Pulmonary haemorrhage [Unknown]
  - Drug resistance [Unknown]
